FAERS Safety Report 16155059 (Version 4)
Quarter: 2019Q2

REPORT INFORMATION
  Report Type: Report from Study
  Country: DE (occurrence: DE)
  Receive Date: 20190403
  Receipt Date: 20190517
  Transmission Date: 20190711
  Serious: Yes (Hospitalization, Other)
  Sender: FDA-Public Use
  Company Number: DE-BRISTOL-MYERS SQUIBB COMPANY-BMS-2017-052253

PATIENT
  Age: 61 Year
  Sex: Male

DRUGS (9)
  1. NIVOLUMAB [Suspect]
     Active Substance: NIVOLUMAB
     Indication: PRODUCT USED FOR UNKNOWN INDICATION
     Dosage: 240 MILLIGRAM, Q3WK
     Route: 042
     Dates: start: 20180605
  2. OSSOFORTIN PLUS [Concomitant]
     Indication: PROPHYLAXIS
     Dosage: UNK
     Route: 065
     Dates: start: 20170907
  3. NIVOLUMAB [Suspect]
     Active Substance: NIVOLUMAB
     Indication: PRODUCT USED FOR UNKNOWN INDICATION
     Dosage: 240 MILLIGRAM, Q4WK
     Route: 042
     Dates: start: 20170421, end: 20190311
  4. PARACODIN                          /00063001/ [Concomitant]
     Indication: PROPHYLAXIS
     Dosage: 30 G, UNK
     Route: 065
     Dates: start: 20170711
  5. XGEVA [Concomitant]
     Active Substance: DENOSUMAB
     Indication: NEOPLASM MALIGNANT
     Dosage: 120 MG, UNK
     Route: 065
     Dates: start: 20170505
  6. PANTOPRAZOLE [Concomitant]
     Active Substance: PANTOPRAZOLE
     Indication: PROPHYLAXIS
     Dosage: 20 MG, UNK
     Route: 065
     Dates: start: 20170810
  7. NIVOLUMAB [Suspect]
     Active Substance: NIVOLUMAB
     Indication: NON-SMALL CELL LUNG CANCER
     Dosage: 3 MG/KG, Q2WK
     Route: 042
     Dates: start: 20170421
  8. INNOHEP [Concomitant]
     Active Substance: TINZAPARIN SODIUM
     Indication: PROPHYLAXIS
     Dosage: UNK
     Route: 065
     Dates: start: 20180608
  9. XARELTO [Concomitant]
     Active Substance: RIVAROXABAN
     Indication: PRODUCT USED FOR UNKNOWN INDICATION
     Dosage: 20 MG, UNK
     Route: 065
     Dates: start: 20170606, end: 20180608

REACTIONS (19)
  - Epilepsy [Not Recovered/Not Resolved]
  - Cerebral ischaemia [Not Recovered/Not Resolved]
  - Hypothyroidism [Not Recovered/Not Resolved]
  - Erythema [Recovered/Resolved]
  - Arthralgia [Recovered/Resolved]
  - Pain [Not Recovered/Not Resolved]
  - Dizziness [Recovered/Resolved]
  - Fatigue [Recovered/Resolved]
  - Pruritus [Recovered/Resolved]
  - Type 2 diabetes mellitus [Not Recovered/Not Resolved]
  - Anaemia [Recovered/Resolved]
  - Decreased appetite [Recovered/Resolved]
  - Dyspnoea [Not Recovered/Not Resolved]
  - Cough [Recovered/Resolved]
  - Ischaemia [Recovered/Resolved]
  - Thrombocytopenia [Recovered/Resolved]
  - Off label use [Unknown]
  - Malignant neoplasm progression [Not Recovered/Not Resolved]
  - Gait disturbance [Recovered/Resolved]

NARRATIVE: CASE EVENT DATE: 20170505
